FAERS Safety Report 9664518 (Version 1)
Quarter: 2013Q4

REPORT INFORMATION
  Report Type: Spontaneous
  Country: US (occurrence: None)
  Receive Date: 20131030
  Receipt Date: 20131030
  Transmission Date: 20140711
  Serious: Yes (Hospitalization)
  Sender: FDA-Public Use
  Company Number: None

PATIENT
  Age: 75 Year
  Sex: Male
  Weight: 72.6 kg

DRUGS (1)
  1. CHLORTHALIDONE [Suspect]
     Indication: HYPERTENSION
     Route: 048
     Dates: start: 20110420, end: 20130704

REACTIONS (11)
  - Confusional state [None]
  - Dry mouth [None]
  - Personality change [None]
  - Tangentiality [None]
  - Thinking abnormal [None]
  - Abnormal dreams [None]
  - Hyponatraemia [None]
  - Hypokalaemia [None]
  - Hypochloraemia [None]
  - Hip fracture [None]
  - Nervous system disorder [None]
